FAERS Safety Report 7940968-X (Version None)
Quarter: 2011Q4

REPORT INFORMATION
  Report Type: 
  Country: None (occurrence: None)
  Receive Date: 20111128
  Receipt Date: 20111116
  Transmission Date: 20120403
  Serious: Yes (Other)
  Sender: FDA-Public Use
  Company Number: PHHY2011GB101903

PATIENT
  Age: 48 Year
  Sex: Male

DRUGS (3)
  1. FLUOROURACIL [Suspect]
     Indication: GASTROINTESTINAL CARCINOMA
     Dates: end: 20110809
  2. AVASTIN [Suspect]
     Dates: end: 20110727
  3. IRINOTECAN HCL [Suspect]
     Dates: end: 20110809

REACTIONS (1)
  - HAND FRACTURE [None]
